FAERS Safety Report 8390930-0 (Version None)
Quarter: 2012Q2

REPORT INFORMATION
  Report Type: 
  Country: None (occurrence: None)
  Receive Date: 20120529
  Receipt Date: 20120517
  Transmission Date: 20120825
  Serious: Yes (Other)
  Sender: FDA-Public Use
  Company Number: AR-JNJFOC-20120213016

PATIENT
  Sex: Female

DRUGS (3)
  1. REMICADE [Suspect]
     Route: 042
     Dates: start: 20120417
  2. REMICADE [Suspect]
     Indication: RHEUMATOID ARTHRITIS
     Route: 042
     Dates: start: 20110215
  3. LOTREL [Concomitant]
     Route: 065

REACTIONS (7)
  - SENSATION OF PRESSURE [None]
  - WEIGHT DECREASED [None]
  - LOCALISED INFECTION [None]
  - PALPITATIONS [None]
  - HYPERTENSION [None]
  - ABDOMINAL PAIN UPPER [None]
  - APHAGIA [None]
